FAERS Safety Report 23758871 (Version 1)
Quarter: 2024Q2

REPORT INFORMATION
  Report Type: Other
  Country: US (occurrence: None)
  Receive Date: 20240418
  Receipt Date: 20240418
  Transmission Date: 20240716
  Serious: No
  Sender: FDA-Public Use
  Company Number: US-ROCHE-3357109

PATIENT
  Age: 56 Year

DRUGS (5)
  1. BEVACIZUMAB [Suspect]
     Active Substance: BEVACIZUMAB
     Indication: Central serous chorioretinopathy
     Route: 065
  2. BEVACIZUMAB [Suspect]
     Active Substance: BEVACIZUMAB
     Indication: Choroidal neovascularisation
  3. AFLIBERCEPT [Concomitant]
     Active Substance: AFLIBERCEPT
  4. DIFLUPREDNATE [Concomitant]
     Active Substance: DIFLUPREDNATE
     Dosage: 0.05% OPHTHALMIC EMULSION
  5. BROMFENAC [Concomitant]
     Active Substance: BROMFENAC SODIUM
     Dosage: 0.075% OPHTHALMIC SOLUTION

REACTIONS (2)
  - Off label use [Unknown]
  - Off label use [Unknown]
